FAERS Safety Report 6096791-7 (Version None)
Quarter: 2009Q1

REPORT INFORMATION
  Report Type: 
  Country: None (occurrence: None)
  Receive Date: 20090227
  Receipt Date: 20090217
  Transmission Date: 20090719
  Serious: Yes (Other)
  Sender: FDA-Public Use
  Company Number: JP-PFIZER INC-2009172353

PATIENT

DRUGS (1)
  1. NORVASC [Suspect]
     Dosage: UNK
     Route: 048
     Dates: start: 20080101

REACTIONS (8)
  - BLOOD PRESSURE INCREASED [None]
  - DRY SKIN [None]
  - HEADACHE [None]
  - HOT FLUSH [None]
  - POLLAKIURIA [None]
  - SKIN DISCOLOURATION [None]
  - SWELLING FACE [None]
  - URINE OUTPUT INCREASED [None]
